FAERS Safety Report 24018727 (Version 2)
Quarter: 2024Q3

REPORT INFORMATION
  Report Type: Report from Study
  Country: US (occurrence: US)
  Receive Date: 20240627
  Receipt Date: 20240703
  Transmission Date: 20241017
  Serious: Yes (Hospitalization)
  Sender: JOHNSON AND JOHNSON
  Company Number: US-JNJFOC-20100307489

PATIENT
  Age: 40 Year
  Sex: Female
  Weight: 99.9 kg

DRUGS (2)
  1. REMICADE [Suspect]
     Active Substance: INFLIXIMAB
     Indication: Psoriasis
     Route: 041
     Dates: start: 20070109, end: 20090520
  2. REMICADE [Suspect]
     Active Substance: INFLIXIMAB
     Route: 041
     Dates: start: 20090703, end: 20111129

REACTIONS (2)
  - Staphylococcal infection [Recovered/Resolved]
  - Abscess [Recovered/Resolved]

NARRATIVE: CASE EVENT DATE: 20100226
